FAERS Safety Report 18606114 (Version 2)
Quarter: 2020Q4

REPORT INFORMATION
  Report Type: Spontaneous
  Country: US (occurrence: US)
  Receive Date: 20201211
  Receipt Date: 20201221
  Transmission Date: 20210114
  Serious: No
  Sender: FDA-Public Use
  Company Number: US-PFIZER INC-2020487431

PATIENT
  Age: 17 Year
  Sex: Female

DRUGS (1)
  1. XELJANZ [Suspect]
     Active Substance: TOFACITINIB CITRATE
     Indication: ALOPECIA AREATA
     Dosage: 10 MG, TWO TIMES A DAY (BID)
     Route: 048

REACTIONS (2)
  - Drug hypersensitivity [Unknown]
  - Off label use [Unknown]
